FAERS Safety Report 21266716 (Version 1)
Quarter: 2022Q3

REPORT INFORMATION
  Report Type: Spontaneous
  Country: US (occurrence: None)
  Receive Date: 20220826
  Receipt Date: 20220826
  Transmission Date: 20221027
  Serious: Yes (Hospitalization)
  Sender: FDA-Public Use
  Company Number: None

PATIENT
  Age: 74 Year
  Sex: Female

DRUGS (1)
  1. TOBRAMYCIN [Suspect]
     Active Substance: TOBRAMYCIN
     Indication: Cystic fibrosis
     Dosage: 300 MG/5ML?INHALE 5ML VIA NEBULIZER TWICE DAILY FOR 28 DAYS ON AND 28 DAYS OFF?
     Route: 055
     Dates: start: 20170111

REACTIONS (1)
  - Surgery [None]

NARRATIVE: CASE EVENT DATE: 20220808
